FAERS Safety Report 13683577 (Version 1)
Quarter: 2017Q2

REPORT INFORMATION
  Report Type: Spontaneous
  Country: US (occurrence: US)
  Receive Date: 20170623
  Receipt Date: 20170623
  Transmission Date: 20170830
  Serious: No
  Sender: FDA-Public Use
  Company Number: US-ASTELLAS-2016US043408

PATIENT
  Age: 76 Year
  Sex: Female

DRUGS (1)
  1. VESICARE [Suspect]
     Active Substance: SOLIFENACIN SUCCINATE
     Indication: PRODUCT USED FOR UNKNOWN INDICATION
     Route: 065
     Dates: start: 201610

REACTIONS (6)
  - Dry mouth [Unknown]
  - Drug effect incomplete [Unknown]
  - Groin pain [Unknown]
  - Bowel movement irregularity [Unknown]
  - Urine flow decreased [Unknown]
  - Constipation [Unknown]

NARRATIVE: CASE EVENT DATE: 201610
